FAERS Safety Report 9220441 (Version 2)
Quarter: 2013Q4

REPORT INFORMATION
  Report Type: Spontaneous
  Country: US (occurrence: None)
  Receive Date: 20120830
  Receipt Date: 20131226
  Transmission Date: 20140711
  Serious: Yes (Other)
  Sender: FDA-Public Use
  Company Number: PHEH2012US011090

PATIENT
  Sex: Female

DRUGS (3)
  1. SANDOSTATIN LAR (OCTREOTIDE W/POLY (D L-LACTIDE-CO-GLYCOLIDE)) [Suspect]
     Indication: SMALL INTESTINE CARCINOMA METASTATIC
     Dosage: 20 MG, EVERY MORNING, INTRAMUSCULAR
     Route: 030
  2. SANDOSTATIN LAR (OCTREOTIDE W/POLY (D L-LACTIDE-CO-GLYCOLIDE)) [Suspect]
     Indication: METASTATIC CARCINOID TUMOUR
     Dosage: 20 MG, EVERY MORNING, INTRAMUSCULAR
     Route: 030
  3. SUTENT (SUNITINIB MALATE) [Concomitant]

REACTIONS (6)
  - Hepatic lesion [None]
  - Blood chromogranin A increased [None]
  - Neoplasm malignant [None]
  - Drug ineffective [None]
  - Flushing [None]
  - Diarrhoea [None]
